FAERS Safety Report 5625835-9 (Version None)
Quarter: 2008Q1

REPORT INFORMATION
  Report Type: 
  Country: None (occurrence: None)
  Receive Date: 20080214
  Receipt Date: 20080128
  Transmission Date: 20080703
  Serious: Yes (Death)
  Sender: FDA-Public Use
  Company Number: JP-NOVOPROD-271600

PATIENT

DRUGS (5)
  1. NOVOSEVEN [Suspect]
     Indication: HAEMORRHAGE
     Dosage: 100 UG/KG, UNK
     Route: 042
  2. RED BLOOD CELLS [Concomitant]
  3. FRESH FROZEN PLASMA [Concomitant]
  4. TRANEXAMIC ACID [Concomitant]
  5. DESMOPRESSIN [Concomitant]

REACTIONS (2)
  - ACUTE MYOCARDIAL INFARCTION [None]
  - CARDIOGENIC SHOCK [None]
